FAERS Safety Report 13150656 (Version 1)
Quarter: 2017Q1

REPORT INFORMATION
  Report Type: Spontaneous
  Country: SE (occurrence: SE)
  Receive Date: 20170125
  Receipt Date: 20170125
  Transmission Date: 20170428
  Serious: Yes (Other)
  Sender: FDA-Public Use
  Company Number: SE-TEVA-730540ACC

PATIENT
  Age: 76 Year
  Sex: Female

DRUGS (15)
  1. GANFORD [Concomitant]
  2. METFORMIN ACTAVIS 500 MG FILM COATED TABLET [Concomitant]
     Dates: start: 20120702
  3. LEVAXIN [Concomitant]
     Active Substance: LEVOTHYROXINE SODIUM
  4. PARAFLEX [Concomitant]
     Active Substance: CHLORZOXAZONE
  5. TROMBYL [Concomitant]
     Active Substance: ASPIRIN
  6. ATORVASTATIN TEVA [Concomitant]
     Active Substance: ATORVASTATIN
  7. OXASCAND 15MG TABLET [Suspect]
     Active Substance: OXAZEPAM
     Indication: ANXIETY
     Dosage: 45 MILLIGRAM DAILY;
     Route: 048
     Dates: start: 20120525
  8. CYMBALTA [Concomitant]
     Active Substance: DULOXETINE HYDROCHLORIDE
  9. VICTOZA [Concomitant]
     Active Substance: LIRAGLUTIDE
  10. PANODIL [Concomitant]
     Active Substance: ACETAMINOPHEN
  11. CITODON [Suspect]
     Active Substance: ACETAMINOPHEN\CODEINE PHOSPHATE
     Indication: SPINAL OPERATION
     Dates: start: 20151002, end: 20161223
  12. IMOVANE [Suspect]
     Active Substance: ZOPICLONE
     Indication: SLEEP DISORDER
     Dosage: 7.5 MILLIGRAM DAILY; 2 TABLETS IN THE EVENING, TO SLEEP
     Route: 048
     Dates: start: 20151111
  13. LYRICA [Concomitant]
     Active Substance: PREGABALIN
     Dates: start: 20141124
  14. DIVISUN 800 IU TABLET [Concomitant]
  15. ENALAPRIL SANDOZ TEVA LEVAXIN [Concomitant]

REACTIONS (3)
  - Dependence [Unknown]
  - Mental disorder [Unknown]
  - Abnormal behaviour [Unknown]

NARRATIVE: CASE EVENT DATE: 2016
